FAERS Safety Report 9704840 (Version 2)
Quarter: 2013Q4

REPORT INFORMATION
  Report Type: Report from Study
  Country: US (occurrence: US)
  Receive Date: 20131122
  Receipt Date: 20131219
  Transmission Date: 20140711
  Serious: Yes (Hospitalization)
  Sender: FDA-Public Use
  Company Number: US-DRAFT-US-2013-12201

PATIENT
  Sex: 0

DRUGS (9)
  1. BUSULFEX [Suspect]
     Indication: STEM CELL TRANSPLANT
     Dosage: 246 (2 DOSES) 310 (2 DOSES) DAILY DOSE
     Route: 041
     Dates: start: 20060726, end: 20060729
  2. FLUDARABINE [Suspect]
     Indication: STEM CELL TRANSPLANT
     Dosage: 48 UNK, DAILY DOSE
     Route: 042
     Dates: start: 20060725, end: 20060729
  3. ALEMTUZUMAB [Suspect]
     Indication: STEM CELL TRANSPLANT
     Dosage: 20 UNK, DAILY DOSE
     Route: 042
  4. CLONAZEPAM [Suspect]
     Indication: CONVULSION PROPHYLAXIS
     Dosage: UNK
     Route: 048
  5. PROGRAF [Concomitant]
     Dosage: UNK
  6. VANCOMYCIN HCL [Concomitant]
     Dosage: UNK
     Route: 042
  7. VANCOMYCIN HCL [Concomitant]
     Route: 048
  8. VORICONAZOLE [Concomitant]
  9. DAPTOMYCIN [Concomitant]

REACTIONS (1)
  - Renal failure acute [Unknown]
